FAERS Safety Report 13415432 (Version 1)
Quarter: 2017Q2

REPORT INFORMATION
  Report Type: Spontaneous
  Country: US (occurrence: US)
  Receive Date: 20170406
  Receipt Date: 20170406
  Transmission Date: 20170830
  Serious: Yes (Hospitalization)
  Sender: FDA-Public Use
  Company Number: US-PFIZER INC-2017092217

PATIENT
  Age: 74 Year
  Sex: Female
  Weight: 75 kg

DRUGS (6)
  1. SINGULAIR [Concomitant]
     Active Substance: MONTELUKAST SODIUM
     Dosage: 2.5 UG, UNK (2.5MCG/ACTUATION)
     Dates: start: 2000
  2. ROBITUSSIN COUGH AND CHEST CONGESTION DM MAX [Suspect]
     Active Substance: DEXTROMETHORPHAN HYDROBROMIDE\GUAIFENESIN
     Indication: COUGH
     Dosage: 20 MG, UNK (3 OR 4 TIMES DAILY)
     Dates: start: 201611
  3. FLOVENT [Concomitant]
     Active Substance: FLUTICASONE PROPIONATE
     Dosage: UNK (INHALER)
     Dates: start: 2000
  4. HALLS ORIGINAL [Concomitant]
     Indication: COUGH
     Dosage: UNK
  5. COMBIVENT [Concomitant]
     Active Substance: ALBUTEROL SULFATE\IPRATROPIUM BROMIDE
     Dosage: 2 DF, 2X/DAY (2 PUFFS, ONE IN THE MORNING AND ONE AT NIGHT)
     Dates: start: 2000
  6. CINNAMON RED HOTS [Concomitant]
     Indication: COUGH
     Dosage: UNK

REACTIONS (3)
  - Abdominal discomfort [Unknown]
  - Drug ineffective [Unknown]
  - Intentional product misuse [Unknown]

NARRATIVE: CASE EVENT DATE: 201611
